FAERS Safety Report 5385871-7 (Version None)
Quarter: 2007Q3

REPORT INFORMATION
  Report Type: 
  Country: None (occurrence: None)
  Receive Date: 20070712
  Receipt Date: 20070709
  Transmission Date: 20080115
  Serious: Yes (Hospitalization)
  Sender: FDA-Public Use
  Company Number: JP-BOEHRINGER INGELHEIM PHARMACEUTICALS, INC.-2007-BP-07562NB

PATIENT
  Age: 6 Decade
  Sex: Male

DRUGS (6)
  1. MICARDIS [Suspect]
     Indication: HYPERTENSION
     Route: 048
  2. HALFDIGOXIN [Suspect]
     Route: 048
  3. NATEGLINIDE [Concomitant]
     Route: 048
  4. LASIX [Concomitant]
     Route: 048
  5. ARTIST [Concomitant]
     Route: 048
  6. NORVASC [Concomitant]
     Route: 048

REACTIONS (2)
  - TRANSIENT ISCHAEMIC ATTACK [None]
  - VISUAL DISTURBANCE [None]
